FAERS Safety Report 9491990 (Version 1)
Quarter: 2013Q3

REPORT INFORMATION
  Report Type: Report from Study
  Country: FR (occurrence: FR)
  Receive Date: 20130830
  Receipt Date: 20130830
  Transmission Date: 20140515
  Serious: Yes (Hospitalization)
  Sender: FDA-Public Use
  Company Number: FR-MERCK-1308FRA009982

PATIENT
  Age: 62 Year
  Sex: Female
  Weight: 65 kg

DRUGS (8)
  1. SITAGLIPTIN PHOSPHATE [Suspect]
     Indication: TYPE 2 DIABETES MELLITUS
     Dosage: 100 MG, QD
     Dates: start: 20100308, end: 20110509
  2. SITAGLIPTIN PHOSPHATE [Suspect]
     Dosage: UNK
  3. JANUVIA [Suspect]
     Indication: TYPE 2 DIABETES MELLITUS
     Dosage: 100 MG, QD
     Route: 048
     Dates: start: 20110509, end: 20111110
  4. JANUVIA [Suspect]
     Dosage: 100 MG, QD
     Route: 048
     Dates: start: 20120213, end: 20120509
  5. DIAMICRON [Suspect]
     Indication: TYPE 2 DIABETES MELLITUS
     Dosage: 60 MG, QD
     Route: 048
     Dates: start: 20110509, end: 20130423
  6. METFORMIN [Suspect]
     Indication: TYPE 2 DIABETES MELLITUS
     Dosage: 500 MG, TID
     Route: 048
     Dates: start: 2007, end: 20100607
  7. METFORMIN [Suspect]
     Dosage: 1000 MG, TID
     Route: 048
     Dates: start: 20100607, end: 20111110
  8. METFORMIN [Suspect]
     Dosage: 1000 MG, TID
     Route: 048
     Dates: start: 20120509, end: 20130301

REACTIONS (2)
  - Hospitalisation [Unknown]
  - Drug ineffective [Unknown]
